FAERS Safety Report 5892314-3 (Version None)
Quarter: 2008Q3

REPORT INFORMATION
  Report Type: 
  Country: None (occurrence: None)
  Receive Date: 20080922
  Receipt Date: 20080912
  Transmission Date: 20090109
  Serious: Yes (Hospitalization)
  Sender: FDA-Public Use
  Company Number: US-JNJCH-2008019934

PATIENT
  Age: 85 Year
  Sex: Female
  Weight: 68.9 kg

DRUGS (3)
  1. NEOSPORIN [Suspect]
     Indication: INJURY
     Dosage: TEXT:ENOUGH TO COVER THE CUT ONCE
     Route: 061
     Dates: start: 20080628, end: 20080628
  2. XANAX [Concomitant]
     Indication: DRUG USE FOR UNKNOWN INDICATION
     Dosage: TEXT:2 MG THREE TIMES DAILY
     Route: 065
  3. EFFEXOR [Concomitant]
     Indication: DRUG USE FOR UNKNOWN INDICATION
     Dosage: TEXT:75 MG DAILY
     Route: 065

REACTIONS (2)
  - DRUG INEFFECTIVE [None]
  - PHARMACEUTICAL PRODUCT COMPLAINT [None]
